FAERS Safety Report 16347387 (Version 1)
Quarter: 2019Q2

REPORT INFORMATION
  Report Type: Spontaneous
  Country: US (occurrence: US)
  Receive Date: 20190523
  Receipt Date: 20190523
  Transmission Date: 20190711
  Serious: Yes (Death, Other)
  Sender: FDA-Public Use
  Company Number: US-SA-2017SA175184

PATIENT
  Age: 67 Year
  Sex: Female

DRUGS (1)
  1. AUBAGIO [Suspect]
     Active Substance: TERIFLUNOMIDE
     Dosage: UNK UNK,UNK
     Route: 048

REACTIONS (8)
  - Fatigue [Recovering/Resolving]
  - Influenza [Recovering/Resolving]
  - Nausea [Unknown]
  - Asthenia [Recovering/Resolving]
  - Sepsis [Unknown]
  - Intestinal perforation [Unknown]
  - Death [Fatal]
  - Vomiting [Unknown]

NARRATIVE: CASE EVENT DATE: 201803
